FAERS Safety Report 23180315 (Version 1)
Quarter: 2023Q4

REPORT INFORMATION
  Report Type: Report from Study
  Country: US (occurrence: US)
  Receive Date: 20231114
  Receipt Date: 20231114
  Transmission Date: 20240110
  Serious: Yes (Other)
  Sender: FDA-Public Use
  Company Number: US-ABBVIE-5413475

PATIENT
  Sex: Female
  Weight: 97.522 kg

DRUGS (1)
  1. HUMIRA [Suspect]
     Active Substance: ADALIMUMAB
     Indication: Psoriasis
     Dosage: FORM STRENGTH WAS 40 MILLIGRAM?CITRATE FREE
     Route: 058
     Dates: start: 20230421

REACTIONS (16)
  - Unresponsive to stimuli [Unknown]
  - Irritability [Unknown]
  - Psoriasis [Not Recovered/Not Resolved]
  - Social anxiety disorder [Unknown]
  - Apathy [Unknown]
  - Unevaluable event [Unknown]
  - Thinking abnormal [Unknown]
  - Unevaluable event [Unknown]
  - Asthenia [Unknown]
  - Fatigue [Unknown]
  - Dissociation [Unknown]
  - Discomfort [Unknown]
  - Depression [Unknown]
  - Autism spectrum disorder [Unknown]
  - Sensory overload [Unknown]
  - Executive dysfunction [Unknown]

NARRATIVE: CASE EVENT DATE: 20230101
